FAERS Safety Report 9247901 (Version 1)
Quarter: 2013Q2

REPORT INFORMATION
  Report Type: Spontaneous
  Country: US (occurrence: US)
  Receive Date: 20130423
  Receipt Date: 20130423
  Transmission Date: 20140414
  Serious: No
  Sender: FDA-Public Use
  Company Number: US-MYLANLABS-2012S1007115

PATIENT
  Age: 66 Year
  Sex: Female

DRUGS (1)
  1. CLARITHROMYCIN TABLETS [Suspect]
     Indication: INFECTION
     Route: 048
     Dates: start: 20120330, end: 20120402

REACTIONS (2)
  - Rash generalised [Not Recovered/Not Resolved]
  - Irritability [Not Recovered/Not Resolved]
